APPROVED DRUG PRODUCT: AMANTADINE HYDROCHLORIDE
Active Ingredient: AMANTADINE HYDROCHLORIDE
Strength: 100MG
Dosage Form/Route: CAPSULE;ORAL
Application: A209171 | Product #001 | TE Code: AB
Applicant: HERITAGE PHARMA LABS INC
Approved: Jun 12, 2017 | RLD: No | RS: No | Type: RX